FAERS Safety Report 5204552-3 (Version None)
Quarter: 2007Q1

REPORT INFORMATION
  Report Type: 
  Country: None (occurrence: None)
  Receive Date: 20070110
  Receipt Date: 20060505
  Transmission Date: 20070707
  Serious: No
  Sender: FDA-Public Use
  Company Number: US-BRISTOL-MYERS SQUIBB COMPANY-13368782

PATIENT
  Age: 16 Year
  Sex: Male
  Weight: 68 kg

DRUGS (4)
  1. ABILIFY [Suspect]
     Indication: PSYCHOTIC DISORDER
     Dates: start: 20060401, end: 20060505
  2. DEPAKOTE [Concomitant]
  3. DDAVP [Concomitant]
  4. NEPHRAMINE [Concomitant]

REACTIONS (2)
  - PARKINSONISM [None]
  - TARDIVE DYSKINESIA [None]
